FAERS Safety Report 9813019 (Version 1)
Quarter: 2014Q1

REPORT INFORMATION
  Report Type: Spontaneous
  Country: US (occurrence: None)
  Receive Date: 20140109
  Receipt Date: 20140109
  Transmission Date: 20141002
  Serious: No
  Sender: FDA-Public Use
  Company Number: None

PATIENT
  Age: 70 Year
  Sex: Male
  Weight: 86.18 kg

DRUGS (4)
  1. RANITIDINE [Suspect]
     Indication: BARRETT^S OESOPHAGUS
     Route: 048
     Dates: start: 20131101, end: 20131201
  2. RANITIDINE [Suspect]
     Indication: GASTROOESOPHAGEAL REFLUX DISEASE
     Route: 048
     Dates: start: 20131101, end: 20131201
  3. MULTI VITAMIN [Concomitant]
  4. IRON SUPPLEMENT [Concomitant]

REACTIONS (2)
  - Drug ineffective [None]
  - Product counterfeit [None]
